FAERS Safety Report 5826094-4 (Version None)
Quarter: 2008Q2

REPORT INFORMATION
  Report Type: 
  Country: None (occurrence: None)
  Receive Date: 20080601
  Receipt Date: 20080205
  Transmission Date: 20081010
  Serious: No
  Sender: FDA-Public Use
  Company Number: US200802001094

PATIENT
  Age: 63 Year
  Sex: Male

DRUGS (2)
  1. BYETTA [Suspect]
     Indication: TYPE 2 DIABETES MELLITUS
     Dosage: 10 UG, 2/D, SUBCUTANEOUS
     Route: 058
     Dates: start: 20071201
  2. GLUCOPHAGE /USA/ (METFORMIN HYDROCHLORIDE) [Concomitant]

REACTIONS (1)
  - INCORRECT DOSE ADMINISTERED [None]
